FAERS Safety Report 7715379-2 (Version None)
Quarter: 2011Q3

REPORT INFORMATION
  Report Type: 
  Country: None (occurrence: None)
  Receive Date: 20110829
  Receipt Date: 20110815
  Transmission Date: 20111222
  Serious: Yes (Hospitalization)
  Sender: FDA-Public Use
  Company Number: US-ELI_LILLY_AND_COMPANY-US201105004281

PATIENT
  Sex: Female
  Weight: 48.1 kg

DRUGS (15)
  1. NIACIN [Concomitant]
  2. FORTEO [Suspect]
     Dosage: 20 UG, QD
     Route: 065
  3. PERCOCET [Concomitant]
  4. NEXIUM [Concomitant]
  5. TOPROL-XL [Concomitant]
  6. SIMAVASTATIN [Concomitant]
  7. FORTEO [Suspect]
     Indication: OSTEOPOROSIS
     Dosage: 20 UG, QD
     Route: 065
     Dates: start: 20110420
  8. IBUPROFEN [Concomitant]
  9. LEVOTHYROXINE SODIUM [Concomitant]
  10. FORTEO [Suspect]
     Dosage: 20 UG, QD
     Route: 065
     Dates: start: 20110707
  11. ZOFRAN [Concomitant]
  12. TYLENOL                                 /SCH/ [Concomitant]
  13. CIPROFLOXACIN [Concomitant]
  14. FLAGYL [Concomitant]
  15. LISINOPRIL [Concomitant]

REACTIONS (7)
  - MUSCULOSKELETAL PAIN [None]
  - PAIN IN EXTREMITY [None]
  - BONE PAIN [None]
  - ARTHRITIS [None]
  - TOOTHACHE [None]
  - ARTHRALGIA [None]
  - GALLBLADDER OPERATION [None]
